FAERS Safety Report 5211893-2 (Version None)
Quarter: 2007Q1

REPORT INFORMATION
  Report Type: 
  Country: None (occurrence: None)
  Receive Date: 20070116
  Receipt Date: 20070116
  Transmission Date: 20070707
  Serious: No
  Sender: FDA-Public Use
  Company Number: None

PATIENT
  Age: 46 Year
  Sex: Female
  Weight: 83.3 kg

DRUGS (1)
  1. PRIMAXIN [Suspect]
     Indication: ILL-DEFINED DISORDER
     Dosage: 500MG EVERY 8 HOURS IV
     Route: 042
     Dates: start: 20061226, end: 20061227

REACTIONS (2)
  - PRURITUS [None]
  - RASH [None]
